FAERS Safety Report 9436795 (Version 1)
Quarter: 2013Q3

REPORT INFORMATION
  Report Type: Spontaneous
  Country: FR (occurrence: FR)
  Receive Date: 20130802
  Receipt Date: 20130802
  Transmission Date: 20140515
  Serious: Yes (Disabling)
  Sender: FDA-Public Use
  Company Number: FR-009507513-1307FRA013465

PATIENT
  Age: 87 Year
  Sex: Male

DRUGS (2)
  1. NORSET [Suspect]
     Dosage: 15 MG, QD
     Route: 048
     Dates: start: 20130606, end: 20130617
  2. NORSET [Suspect]
     Dosage: 30 MG, QD
     Route: 048
     Dates: start: 20130618, end: 20130619

REACTIONS (2)
  - Confusional state [Recovered/Resolved]
  - Hallucination [Recovered/Resolved]
